FAERS Safety Report 17339594 (Version 1)
Quarter: 2020Q1

REPORT INFORMATION
  Report Type: Spontaneous
  Country: US (occurrence: US)
  Receive Date: 20200129
  Receipt Date: 20200129
  Transmission Date: 20200409
  Serious: Yes (Hospitalization)
  Sender: FDA-Public Use
  Company Number: US-ALLERGAN-1904276US

PATIENT
  Age: 90 Year
  Sex: Male

DRUGS (3)
  1. PLATELET AGGREGATION INHIBITORS EXCL. HEPARIN [Suspect]
     Active Substance: UNSPECIFIED INGREDIENT
     Indication: PLATELET AGGREGATION INHIBITION
     Route: 065
  2. BOTOX [Suspect]
     Active Substance: ONABOTULINUMTOXINA
     Indication: HYPERTONIC BLADDER
     Dosage: 100 UNITS, SINGLE
     Route: 043
  3. BOTOX [Suspect]
     Active Substance: ONABOTULINUMTOXINA
     Indication: MICTURITION URGENCY

REACTIONS (2)
  - Post procedural haemorrhage [Recovered/Resolved]
  - Urinary retention [Unknown]
